FAERS Safety Report 5067405-X (Version None)
Quarter: 2006Q3

REPORT INFORMATION
  Report Type: 
  Country: None (occurrence: None)
  Receive Date: 20060727
  Receipt Date: 20060717
  Transmission Date: 20061208
  Serious: Yes (Other)
  Sender: FDA-Public Use
  Company Number: 060614-0000508

PATIENT
  Age: 37 Year
  Sex: Female

DRUGS (10)
  1. DACTINOMYCIN [Suspect]
     Indication: CHORIOCARCINOMA
     Dosage: INJ
  2. DACTINOMYCIN [Suspect]
     Indication: LUNG NEOPLASM
     Dosage: INJ
  3. ETOPOSIDE [Suspect]
     Indication: CHORIOCARCINOMA
  4. ETOPOSIDE [Suspect]
     Indication: LUNG NEOPLASM
  5. METHOTREXATE [Suspect]
     Indication: CHORIOCARCINOMA
  6. METHOTREXATE [Suspect]
     Indication: LUNG NEOPLASM
  7. CYCLOPHOSPHAMIDE [Suspect]
     Indication: CHORIOCARCINOMA
  8. CYCLOPHOSPHAMIDE [Suspect]
     Indication: LUNG NEOPLASM
  9. ONCOVIN [Suspect]
     Indication: CHORIOCARCINOMA
     Dosage: INJ
  10. ONCOVIN [Suspect]
     Indication: LUNG NEOPLASM
     Dosage: INJ

REACTIONS (8)
  - ARTHRALGIA [None]
  - BONE MARROW FAILURE [None]
  - INFUSION RELATED REACTION [None]
  - MOUTH ULCERATION [None]
  - NEPHROPATHY TOXIC [None]
  - RESPIRATORY DISTRESS [None]
  - STOMATITIS [None]
  - THERAPEUTIC RESPONSE DECREASED [None]
